FAERS Safety Report 9097368 (Version 1)
Quarter: 2013Q1

REPORT INFORMATION
  Report Type: Spontaneous
  Country: US (occurrence: US)
  Receive Date: 20130212
  Receipt Date: 20130212
  Transmission Date: 20140127
  Serious: Yes (Other)
  Sender: FDA-Public Use
  Company Number: US-BAXTER-2013BAX004819

PATIENT
  Sex: Male
  Weight: 72.73 kg

DRUGS (2)
  1. CYTOXAN (CYCLOPHOSPHAMIDE FOR INJECTION, USP)  1 GRAM VIAL (LYOPHILIZE [Suspect]
     Indication: PLASMA CELL MYELOMA
     Dosage: 300 MG/M2
     Route: 042
  2. DEXAMETHASONE [Suspect]
     Indication: PLASMA CELL MYELOMA
     Route: 048
     Dates: start: 2003

REACTIONS (1)
  - Cataract [Not Recovered/Not Resolved]
